FAERS Safety Report 6311919-9 (Version None)
Quarter: 2009Q3

REPORT INFORMATION
  Report Type: 
  Country: None (occurrence: None)
  Receive Date: 20090817
  Receipt Date: 20090810
  Transmission Date: 20100115
  Serious: Yes (Other)
  Sender: FDA-Public Use
  Company Number: US-BRISTOL-MYERS SQUIBB COMPANY-14737407

PATIENT
  Age: 88 Year
  Sex: Male

DRUGS (1)
  1. DEFINITY [Suspect]
     Indication: ECHOCARDIOGRAM
     Dosage: 1DF =1.5ML OF PERFLUTREN DILUTED IN 8.5ML OF NORMAL SALINE. 2ML OF DILUTED PERFLUTREN ADMINISTERED.
     Route: 042

REACTIONS (1)
  - HYPERSENSITIVITY [None]
